FAERS Safety Report 25182911 (Version 3)
Quarter: 2025Q4

REPORT INFORMATION
  Report Type: Report from Study
  Country: KR (occurrence: KR)
  Receive Date: 20250410
  Receipt Date: 20251031
  Transmission Date: 20260118
  Serious: Yes (Hospitalization)
  Sender: ABBVIE
  Company Number: KR-ABBVIE-6003965

PATIENT
  Age: 36 Year
  Sex: Male
  Weight: 75 kg

DRUGS (11)
  1. RINVOQ [Suspect]
     Active Substance: UPADACITINIB
     Indication: Crohn^s disease
     Route: 048
     Dates: start: 20240911, end: 20241203
  2. RINVOQ [Suspect]
     Active Substance: UPADACITINIB
     Indication: Crohn^s disease
     Route: 048
     Dates: start: 20241204, end: 20250309
  3. RINVOQ [Suspect]
     Active Substance: UPADACITINIB
     Indication: Crohn^s disease
     Route: 048
     Dates: start: 20250313
  4. Dong a gaster [Concomitant]
     Indication: Crohn^s disease
     Route: 042
     Dates: start: 20241106, end: 20241106
  5. Antimodic [Concomitant]
     Indication: Crohn^s disease
     Dosage: FORM STRENGTH: 50 MG
     Route: 042
     Dates: start: 20241106, end: 20241106
  6. PENTASA [Concomitant]
     Active Substance: MESALAMINE
     Indication: Crohn^s disease
     Dosage: FORM STRENGTH: 1 GRAM
     Route: 048
     Dates: start: 20240910
  7. URSODIOL [Concomitant]
     Active Substance: URSODIOL
     Indication: Hepatic steatosis
     Dosage: TIME INTERVAL: 0.33333333 DAYS
     Route: 048
     Dates: start: 20250502
  8. VITAMINS [Concomitant]
     Active Substance: VITAMINS
     Indication: Crohn^s disease
     Dosage: UNIT DOSE: 1 VIAL
     Route: 042
     Dates: start: 20241107, end: 20241111
  9. Tretin [Concomitant]
     Indication: Crohn^s disease
     Route: 048
     Dates: start: 20250919
  10. PANTOPRAZOLE SODIUM [Concomitant]
     Active Substance: PANTOPRAZOLE SODIUM
     Indication: Crohn^s disease
     Route: 042
     Dates: start: 20241107, end: 20241111
  11. Ciprobay [Concomitant]
     Indication: Crohn^s disease
     Route: 048
     Dates: start: 20241111, end: 20241112

REACTIONS (3)
  - Small intestinal stenosis [Recovered/Resolved]
  - Abdominal pain [Recovered/Resolved]
  - Acne [Recovering/Resolving]

NARRATIVE: CASE EVENT DATE: 20241106
